FAERS Safety Report 8328405-7 (Version None)
Quarter: 2012Q2

REPORT INFORMATION
  Report Type: 
  Country: None (occurrence: None)
  Receive Date: 20120502
  Receipt Date: 20100824
  Transmission Date: 20120825
  Serious: No
  Sender: FDA-Public Use
  Company Number: US-TEVA-2010003666

PATIENT
  Sex: Male
  Weight: 113.5 kg

DRUGS (4)
  1. NUVIGIL [Suspect]
     Indication: SLEEP APNOEA SYNDROME
     Dosage: 150 MILLIGRAM;
     Route: 048
     Dates: start: 20100101, end: 20100701
  2. NUVIGIL [Suspect]
     Dosage: 250 MILLIGRAM;
     Route: 048
     Dates: start: 20100701
  3. BYETTA [Concomitant]
     Indication: DIABETES MELLITUS
     Route: 058
     Dates: start: 20070101
  4. METFORMIN HCL [Concomitant]
     Indication: DIABETES MELLITUS
     Dosage: 2000 MILLIGRAM;
     Route: 048
     Dates: start: 20070101

REACTIONS (1)
  - PRODUCT TASTE ABNORMAL [None]
